FAERS Safety Report 7761668-5 (Version None)
Quarter: 2011Q3

REPORT INFORMATION
  Report Type: 
  Country: None (occurrence: None)
  Receive Date: 20110920
  Receipt Date: 20110907
  Transmission Date: 20111222
  Serious: Yes (Other)
  Sender: FDA-Public Use
  Company Number: PHHO2011NL15175

PATIENT
  Sex: Male

DRUGS (2)
  1. CERTICAN [Suspect]
     Indication: RENAL TRANSPLANT
     Dosage: 125 MG, BID
     Dates: end: 20110902
  2. PROGRAF [Suspect]
     Indication: RENAL TRANSPLANT
     Dosage: 10 MG, QD
     Dates: start: 20110902

REACTIONS (1)
  - PULMONARY EMBOLISM [None]
